FAERS Safety Report 7642149-6 (Version None)
Quarter: 2011Q3

REPORT INFORMATION
  Report Type: 
  Country: None (occurrence: None)
  Receive Date: 20110727
  Receipt Date: 20110727
  Transmission Date: 20111222
  Serious: Yes (Other)
  Sender: FDA-Public Use
  Company Number: None

PATIENT
  Sex: Female

DRUGS (1)
  1. IMPLANON [Suspect]
     Dates: start: 20110617

REACTIONS (8)
  - SKIN IRRITATION [None]
  - MEDICAL DEVICE COMPLICATION [None]
  - SWELLING [None]
  - ERYTHEMA [None]
  - PRURITUS [None]
  - JOINT SWELLING [None]
  - LOCAL SWELLING [None]
  - EYE SWELLING [None]
